FAERS Safety Report 5537150-2 (Version None)
Quarter: 2007Q4

REPORT INFORMATION
  Report Type: 
  Country: None (occurrence: None)
  Receive Date: 20071207
  Receipt Date: 20061204
  Transmission Date: 20080405
  Serious: Yes (Other)
  Sender: FDA-Public Use
  Company Number: US-AMGEN-KDL198495

PATIENT
  Sex: Male
  Weight: 85.4 kg

DRUGS (5)
  1. ENBREL [Suspect]
     Indication: RHEUMATOID ARTHRITIS
     Route: 058
     Dates: start: 20040416
  2. AZULFIDINE EN-TABS [Concomitant]
     Route: 048
  3. PLAQUENIL [Concomitant]
     Route: 048
  4. RESTASIS [Concomitant]
  5. LOTREL [Concomitant]

REACTIONS (1)
  - TESTICULAR GERM CELL CANCER [None]
